FAERS Safety Report 4832676-9 (Version None)
Quarter: 2005Q4

REPORT INFORMATION
  Report Type: 
  Country: None (occurrence: None)
  Receive Date: 20051117
  Receipt Date: 20051108
  Transmission Date: 20060501
  Serious: Yes (Death, Hospitalization)
  Sender: FDA-Public Use
  Company Number: HQWYE465009NOV05

PATIENT
  Age: 24 Year
  Sex: Male

DRUGS (10)
  1. EFFEXOR XR [Suspect]
     Dosage: 225 MG 1X PER 1 DAY, ORAL
     Route: 048
     Dates: start: 20051102, end: 20051102
  2. BUSPAR [Suspect]
     Dosage: 1 DOSAGE FORM 2X PER 1 DAY
     Dates: start: 20051102, end: 20051103
  3. RISPERDAL [Suspect]
     Dosage: 0.5 MG 2X PER 1 DAY
     Dates: start: 20051102, end: 20051103
  4. SEROQUEL [Suspect]
     Dosage: 300 MG 2X PER 1 DAY
     Dates: start: 20051102, end: 20051103
  5. TEGRETOL [Concomitant]
  6. HALDOL (HALOPERIDOL) [Concomitant]
  7. BENADRYL [Concomitant]
  8. ATIVAN [Concomitant]
  9. LOXITANE [Concomitant]
  10. GEODON [Concomitant]

REACTIONS (8)
  - ACCIDENTAL EXPOSURE [None]
  - BODY TEMPERATURE INCREASED [None]
  - GENERAL PHYSICAL HEALTH DETERIORATION [None]
  - HYPERHIDROSIS [None]
  - RESPIRATORY ARREST [None]
  - TACHYCARDIA [None]
  - TREMOR [None]
  - WRONG DRUG ADMINISTERED [None]
